FAERS Safety Report 9593745 (Version 3)
Quarter: 2014Q2

REPORT INFORMATION
  Report Type: Report from Study
  Country: US (occurrence: US)
  Receive Date: 20131004
  Receipt Date: 20140520
  Transmission Date: 20141212
  Serious: Yes (Death, Hospitalization)
  Sender: FDA-Public Use
  Company Number: US-ALEXION-A201302056

PATIENT
  Sex: 0

DRUGS (3)
  1. SOLIRIS [Suspect]
     Indication: HAEMOLYTIC URAEMIC SYNDROME
     Dosage: 1200 MG, Q2W
     Route: 065
     Dates: start: 20130814, end: 201404
  2. CIPRO                              /00697201/ [Concomitant]
     Indication: PROPHYLAXIS
     Dosage: UNK
     Route: 065
     Dates: start: 20130731
  3. HIV MEDS [Concomitant]
     Indication: HIV INFECTION
     Dosage: UNK
     Route: 065
     Dates: start: 20130801

REACTIONS (5)
  - Death [Fatal]
  - Unevaluable event [Unknown]
  - Contusion [Unknown]
  - Blood pressure increased [Unknown]
  - Blood creatinine abnormal [Unknown]
